FAERS Safety Report 13072346 (Version 2)
Quarter: 2017Q1

REPORT INFORMATION
  Report Type: Report from Study
  Country: None (occurrence: TW)
  Receive Date: 20161229
  Receipt Date: 20170104
  Transmission Date: 20170428
  Serious: Yes (Death, Hospitalization)
  Sender: FDA-Public Use
  Company Number: TW-ABBVIE-16K-153-1824086-00

PATIENT
  Age: 62 Year
  Sex: Female
  Weight: 45 kg

DRUGS (4)
  1. PREDNISOLONE. [Concomitant]
     Active Substance: PREDNISOLONE
     Indication: RHEUMATOID ARTHRITIS
     Route: 048
     Dates: start: 20071214, end: 20161110
  2. ARCOXIA [Concomitant]
     Active Substance: ETORICOXIB
     Indication: RHEUMATOID ARTHRITIS
     Route: 048
     Dates: start: 20090818, end: 20161110
  3. HUMIRA [Suspect]
     Active Substance: ADALIMUMAB
     Indication: RHEUMATOID ARTHRITIS
     Route: 058
     Dates: start: 20120621
  4. MTX [Concomitant]
     Active Substance: METHOTREXATE SODIUM
     Indication: RHEUMATOID ARTHRITIS
     Route: 048
     Dates: start: 20120105, end: 20161110

REACTIONS (7)
  - Spinal pain [Not Recovered/Not Resolved]
  - Knee arthroplasty [Unknown]
  - Intervertebral disc protrusion [Unknown]
  - Procedural pain [Unknown]
  - Hip arthroplasty [Unknown]
  - Death [Fatal]
  - Postoperative wound infection [Unknown]

NARRATIVE: CASE EVENT DATE: 20131203
